FAERS Safety Report 12536936 (Version 1)
Quarter: 2016Q3

REPORT INFORMATION
  Report Type: Spontaneous
  Country: US (occurrence: US)
  Receive Date: 20160707
  Receipt Date: 20160707
  Transmission Date: 20161109
  Serious: No
  Sender: FDA-Public Use
  Company Number: US-GLAXOSMITHKLINE-CHPA2015US009683

PATIENT
  Age: 69 Year
  Sex: Female

DRUGS (3)
  1. TAVIST ALLERGY [Suspect]
     Active Substance: CLEMASTINE FUMARATE
     Dosage: 1 DF, QD
     Route: 048
     Dates: end: 201507
  2. TAVIST ALLERGY [Suspect]
     Active Substance: CLEMASTINE FUMARATE
     Indication: MIDDLE EAR EFFUSION
  3. TAVIST ALLERGY [Suspect]
     Active Substance: CLEMASTINE FUMARATE
     Indication: DIZZINESS

REACTIONS (4)
  - Somnolence [Unknown]
  - Product use issue [Unknown]
  - Expired product administered [Unknown]
  - Therapeutic response unexpected [Unknown]
